FAERS Safety Report 22082470 (Version 6)
Quarter: 2024Q2

REPORT INFORMATION
  Report Type: Report from Study
  Country: US (occurrence: US)
  Receive Date: 20230310
  Receipt Date: 20240506
  Transmission Date: 20240716
  Serious: Yes (Hospitalization, Other)
  Sender: FDA-Public Use
  Company Number: US-ARGENX-2023-ARGX-US000076

PATIENT

DRUGS (5)
  1. VYVGART [Suspect]
     Active Substance: EFGARTIGIMOD ALFA-FCAB
     Indication: Myasthenia gravis
     Dosage: 10 MG/KG
     Route: 042
     Dates: start: 20220517, end: 20220610
  2. VYVGART [Suspect]
     Active Substance: EFGARTIGIMOD ALFA-FCAB
     Dosage: 10 MG/KG
     Route: 042
     Dates: start: 20220729, end: 20220818
  3. VYVGART [Suspect]
     Active Substance: EFGARTIGIMOD ALFA-FCAB
     Dosage: 10 MG/KG
     Route: 042
     Dates: start: 20221108, end: 20221129
  4. VYVGART [Suspect]
     Active Substance: EFGARTIGIMOD ALFA-FCAB
     Dosage: 10 MG/KG
     Route: 042
     Dates: start: 20230215, end: 20230308
  5. VYVGART [Suspect]
     Active Substance: EFGARTIGIMOD ALFA-FCAB
     Dosage: 10 MG/KG
     Route: 042
     Dates: start: 20230407, end: 20230428

REACTIONS (27)
  - Hospitalisation [Recovered/Resolved]
  - Pulmonary embolism [Not Recovered/Not Resolved]
  - Panic attack [Unknown]
  - Dyspnoea [Unknown]
  - Lung disorder [Unknown]
  - Hospitalisation [Unknown]
  - Loss of consciousness [Unknown]
  - Pruritus [Unknown]
  - Therapeutic product effect variable [Unknown]
  - Impaired gastric emptying [Unknown]
  - Diarrhoea [Unknown]
  - Muscular weakness [Unknown]
  - Muscle spasms [Unknown]
  - Fatigue [Unknown]
  - Vomiting [Unknown]
  - Illness [Unknown]
  - Myasthenia gravis [Not Recovered/Not Resolved]
  - Abdominal discomfort [Unknown]
  - Feeling hot [Unknown]
  - Erythema [Unknown]
  - Hyperhidrosis [Unknown]
  - Asthenia [Unknown]
  - Dysphonia [Unknown]
  - Insurance issue [Recovered/Resolved]
  - Product distribution issue [Recovered/Resolved]
  - Viral infection [Unknown]
  - Urinary tract infection [Unknown]

NARRATIVE: CASE EVENT DATE: 20230202
